FAERS Safety Report 10169981 (Version 1)
Quarter: 2014Q2

REPORT INFORMATION
  Report Type: Spontaneous
  Country: GB (occurrence: GB)
  Receive Date: 20140513
  Receipt Date: 20140513
  Transmission Date: 20141212
  Serious: Yes (Other)
  Sender: FDA-Public Use
  Company Number: PHHY2014GB057291

PATIENT
  Age: 51 Year
  Sex: Female
  Weight: 57 kg

DRUGS (5)
  1. METRONIDAZOLE [Suspect]
     Indication: SIALOADENITIS
     Dosage: 400MG TID
     Route: 048
     Dates: start: 20140415, end: 20140419
  2. AMOXICILLIN [Concomitant]
  3. CITALOPRAM [Concomitant]
  4. DICLOFENAC [Concomitant]
  5. PARACETAMOL [Concomitant]

REACTIONS (2)
  - Oral discomfort [Recovering/Resolving]
  - Glossodynia [Recovering/Resolving]
